FAERS Safety Report 7535537-X (Version None)
Quarter: 2011Q2

REPORT INFORMATION
  Report Type: 
  Country: None (occurrence: None)
  Receive Date: 20110609
  Receipt Date: 20110126
  Transmission Date: 20111010
  Serious: Yes (Hospitalization, Other)
  Sender: FDA-Public Use
  Company Number: US-BAYER-201030937NA

PATIENT
  Age: 17 Year
  Sex: Female
  Weight: 93 kg

DRUGS (7)
  1. YAZ [Suspect]
     Indication: ORAL CONTRACEPTION
     Dosage: 1 DF, QD
     Route: 048
     Dates: start: 20080506, end: 20090101
  2. AZITHROMYCIN [Concomitant]
     Dosage: UNK
     Dates: start: 20080509
  3. SINGULAIR [Concomitant]
     Dosage: UNK
     Dates: start: 20080509
  4. CIPROFLOXACIN [Concomitant]
     Dosage: UNK
     Dates: start: 20080421
  5. OXYCODONE HCL AND ACETAMINOPHEN [Concomitant]
     Dosage: UNK
     Dates: start: 20080717
  6. TRAMADOL HCL [Concomitant]
     Indication: MIGRAINE
     Dosage: UNK
     Dates: start: 20080406
  7. YASMIN [Suspect]
     Indication: ORAL CONTRACEPTION
     Route: 048

REACTIONS (3)
  - CHOLECYSTITIS CHRONIC [None]
  - GALLBLADDER DISORDER [None]
  - CHOLELITHIASIS [None]
